FAERS Safety Report 9834665 (Version 1)
Quarter: 2014Q1

REPORT INFORMATION
  Report Type: Spontaneous
  Country: BR (occurrence: BR)
  Receive Date: 20140122
  Receipt Date: 20140122
  Transmission Date: 20141002
  Serious: Yes (Other)
  Sender: FDA-Public Use
  Company Number: BR-JNJFOC-20140112147

PATIENT
  Age: 26 Year
  Sex: Female
  Weight: 40 kg

DRUGS (10)
  1. REMICADE [Suspect]
     Indication: CROHN^S DISEASE
     Route: 042
     Dates: start: 20140109
  2. REMICADE [Suspect]
     Indication: CROHN^S DISEASE
     Route: 042
     Dates: start: 20080206
  3. CIPROFLOXACIN [Concomitant]
     Route: 065
  4. PREDNISONE [Concomitant]
     Route: 065
  5. OMEPRAZOLE [Concomitant]
     Route: 065
  6. MESALAZINE [Concomitant]
     Route: 065
  7. FOLIC ACID [Concomitant]
     Route: 065
  8. DIPHENHYDRAMINE [Concomitant]
     Indication: PROPHYLAXIS
     Route: 042
     Dates: start: 20140109
  9. DIPHENHYDRAMINE [Concomitant]
     Indication: PREMEDICATION
     Route: 042
     Dates: start: 20140109
  10. NORMAL SALINE SOLUTION [Concomitant]
     Route: 042

REACTIONS (8)
  - Cyanosis [Unknown]
  - Blood pressure decreased [Unknown]
  - Infusion related reaction [Unknown]
  - Hyperaemia [Unknown]
  - Respiratory rate decreased [Unknown]
  - Rash [Unknown]
  - Nausea [Unknown]
  - Weight increased [Unknown]
